FAERS Safety Report 6040728-3 (Version None)
Quarter: 2009Q1

REPORT INFORMATION
  Report Type: 
  Country: None (occurrence: None)
  Receive Date: 20090116
  Receipt Date: 20080513
  Transmission Date: 20090719
  Serious: No
  Sender: FDA-Public Use
  Company Number: US-BRISTOL-MYERS SQUIBB COMPANY-14189591

PATIENT
  Age: 79 Year
  Sex: Female

DRUGS (13)
  1. ABILIFY [Suspect]
  2. ALLOPURINOL [Concomitant]
  3. CLONIDINE [Concomitant]
  4. COZAAR [Concomitant]
  5. FERROUS SULFATE TAB [Concomitant]
  6. LASIX [Concomitant]
  7. LORAZEPAM [Concomitant]
  8. DARVOCET [Concomitant]
  9. PROZAC [Concomitant]
  10. TRAZODONE HCL [Concomitant]
  11. ASPIRIN [Concomitant]
  12. MULTI-VITAMIN [Concomitant]
  13. BENEFIBER [Concomitant]

REACTIONS (1)
  - ABDOMINAL DISTENSION [None]
